FAERS Safety Report 6555856-3 (Version None)
Quarter: 2010Q1

REPORT INFORMATION
  Report Type: 
  Country: None (occurrence: None)
  Receive Date: 20100128
  Receipt Date: 20100125
  Transmission Date: 20100710
  Serious: Yes (Other)
  Sender: FDA-Public Use
  Company Number: CHPA2010US01801

PATIENT
  Age: 54 Year
  Sex: Female
  Weight: 77.098 kg

DRUGS (3)
  1. GAS-X EXTRA STR CHEWABLE TABLETS UNKNOWN (NCH) [Suspect]
     Indication: FLATULENCE
     Dosage: 250 MG, QD
     Route: 048
     Dates: start: 20091201, end: 20091201
  2. GAS-X EXTRA STR CHEWABLE TABLETS UNKNOWN (NCH) [Suspect]
     Dosage: 250 MG, QD
     Route: 048
     Dates: start: 20100101, end: 20100101
  3. LIPITOR [Concomitant]
     Indication: CEREBROVASCULAR ACCIDENT
     Dosage: UNK, UNK

REACTIONS (1)
  - CONVULSION [None]
